FAERS Safety Report 16034491 (Version 2)
Quarter: 2019Q2

REPORT INFORMATION
  Report Type: Spontaneous
  Country: US (occurrence: US)
  Receive Date: 20190305
  Receipt Date: 20190524
  Transmission Date: 20190711
  Serious: No
  Sender: FDA-Public Use
  Company Number: US-PFIZER INC-2019087357

PATIENT
  Age: 85 Year
  Sex: Female
  Weight: 53.7 kg

DRUGS (1)
  1. LYRICA [Suspect]
     Active Substance: PREGABALIN
     Indication: PAIN
     Dosage: 25 MG, 2X/DAY [ONE IN MORNING AND ONE AT NIGHT]
     Dates: start: 20190213, end: 20190221

REACTIONS (11)
  - Decreased appetite [Unknown]
  - Increased appetite [Recovered/Resolved]
  - Anger [Unknown]
  - Frustration tolerance decreased [Unknown]
  - Depressed mood [Unknown]
  - Intentional product misuse [Unknown]
  - Vomiting [Unknown]
  - Peripheral swelling [Unknown]
  - Swelling of eyelid [Unknown]
  - Irritability [Unknown]
  - Joint swelling [Unknown]

NARRATIVE: CASE EVENT DATE: 20190219
